FAERS Safety Report 17992491 (Version 1)
Quarter: 2020Q3

REPORT INFORMATION
  Report Type: Spontaneous
  Country: US (occurrence: US)
  Receive Date: 20200707
  Receipt Date: 20200707
  Transmission Date: 20201103
  Serious: Yes (Other)
  Sender: FDA-Public Use
  Company Number: NVSC2020US187360

PATIENT
  Age: 49 Year
  Sex: Female

DRUGS (1)
  1. PAZOPANIB [Suspect]
     Active Substance: PAZOPANIB
     Indication: SMALL CELL LUNG CANCER
     Dosage: 800 MG, QD
     Route: 065
     Dates: start: 20170220

REACTIONS (4)
  - Therapy partial responder [Unknown]
  - Malignant neoplasm progression [Unknown]
  - Product use in unapproved indication [Unknown]
  - Small cell lung cancer [Unknown]
